FAERS Safety Report 25599677 (Version 1)
Quarter: 2025Q3

REPORT INFORMATION
  Report Type: Spontaneous
  Country: US (occurrence: None)
  Receive Date: 20250724
  Receipt Date: 20250724
  Transmission Date: 20251020
  Serious: Yes (Other)
  Sender: EMMAUS LIFE SCIENCES
  Company Number: US-Emmaus Medical, Inc.-EMM202507-000115

PATIENT
  Sex: Female

DRUGS (4)
  1. ENDARI [Suspect]
     Active Substance: GLUTAMINE
     Indication: Thalassaemia sickle cell
     Route: 048
     Dates: start: 202405
  2. ENDARI [Suspect]
     Active Substance: GLUTAMINE
     Indication: Sickle cell disease
     Route: 048
  3. ENDARI [Suspect]
     Active Substance: GLUTAMINE
     Route: 048
  4. ENDARI [Suspect]
     Active Substance: GLUTAMINE
     Route: 048

REACTIONS (3)
  - Acute chest syndrome [Unknown]
  - Constipation [Unknown]
  - Therapy change [Unknown]
